FAERS Safety Report 5420927-1 (Version None)
Quarter: 2007Q3

REPORT INFORMATION
  Report Type: 
  Country: None (occurrence: None)
  Receive Date: 20070817
  Receipt Date: 20070817
  Transmission Date: 20080115
  Serious: Yes (Other)
  Sender: FDA-Public Use
  Company Number: None

PATIENT
  Age: 42 Year
  Sex: Female
  Weight: 62.5964 kg

DRUGS (1)
  1. LEVAQUIN [Suspect]
     Indication: PNEUMONIA
     Dosage: 750MG DAILY PO
     Route: 048
     Dates: start: 20070808, end: 20070811

REACTIONS (3)
  - DIZZINESS [None]
  - HEADACHE [None]
  - VISUAL DISTURBANCE [None]
